FAERS Safety Report 11716219 (Version 2)
Quarter: 2015Q4

REPORT INFORMATION
  Report Type: Spontaneous
  Country: US (occurrence: US)
  Receive Date: 20151104
  Receipt Date: 20151110
  Transmission Date: 20160304
  Serious: Yes (Hospitalization)
  Sender: FDA-Public Use
  Company Number: US-ELI_LILLY_AND_COMPANY-US201107006881

PATIENT
  Age: 78 Year
  Sex: Female

DRUGS (13)
  1. CALCIUM [Concomitant]
     Active Substance: CALCIUM
     Dosage: UNK, QD
  2. FORTEO [Suspect]
     Active Substance: TERIPARATIDE
     Dosage: 20 UG, QD
     Route: 058
  3. WARFARIN [Concomitant]
     Active Substance: WARFARIN
     Dosage: 5 MG 5W AND 2.5 MG 2W
  4. FORTEO [Suspect]
     Active Substance: TERIPARATIDE
     Dosage: 20 UG, QD
     Route: 058
  5. FORTEO [Suspect]
     Active Substance: TERIPARATIDE
     Dosage: 20 UG, QD
     Route: 058
  6. LEVOTHYROXINE. [Concomitant]
     Active Substance: LEVOTHYROXINE
  7. FORTEO [Suspect]
     Active Substance: TERIPARATIDE
     Dosage: 20 UG, QD
     Route: 058
  8. VITAMIN D [Concomitant]
     Active Substance: CHOLECALCIFEROL
     Dosage: UNK, QD
     Route: 048
  9. FORTEO [Suspect]
     Active Substance: TERIPARATIDE
     Indication: OSTEOPOROSIS
     Dosage: 20 UG, QD
     Route: 058
     Dates: start: 20100725
  10. METOPROLOL [Concomitant]
     Active Substance: METOPROLOL
     Dosage: 50 MG, BID
  11. METOPROLOL [Concomitant]
     Active Substance: METOPROLOL
     Dosage: UNK, OTHER
  12. FORTEO [Suspect]
     Active Substance: TERIPARATIDE
     Dosage: 20 UG, QD
     Route: 058
  13. ZITHROMAX [Concomitant]
     Active Substance: AZITHROMYCIN DIHYDRATE
     Dosage: 50 MG, QD

REACTIONS (10)
  - Wrist fracture [Unknown]
  - Rash pruritic [Unknown]
  - Fall [Recovered/Resolved]
  - Anticoagulation drug level above therapeutic [Unknown]
  - Injection site pruritus [Unknown]
  - Injection site bruising [Unknown]
  - Pneumonia [Unknown]
  - Anticoagulation drug level below therapeutic [Unknown]
  - Muscle spasms [Unknown]
  - Frustration [Unknown]

NARRATIVE: CASE EVENT DATE: 20110904
